FAERS Safety Report 11864972 (Version 8)
Quarter: 2016Q2

REPORT INFORMATION
  Report Type: Report from Study
  Country: PL (occurrence: PL)
  Receive Date: 20151223
  Receipt Date: 20160525
  Transmission Date: 20160815
  Serious: Yes (Death, Hospitalization, Other)
  Sender: FDA-Public Use
  Company Number: PL-EISAI MEDICAL RESEARCH-EC-2015-013055

PATIENT
  Age: 57 Year
  Sex: Female
  Weight: 56 kg

DRUGS (12)
  1. LENVATINIB [Suspect]
     Active Substance: LENVATINIB
     Indication: THYROID CANCER
     Route: 048
     Dates: start: 20120925, end: 20130311
  2. ALFADIOL [Concomitant]
     Active Substance: ALFACALCIDOL
  3. LENVATINIB [Suspect]
     Active Substance: LENVATINIB
     Route: 048
     Dates: start: 20130521, end: 20130607
  4. EUTHYROX [Concomitant]
     Active Substance: LEVOTHYROXINE SODIUM
  5. KALIPOZ [Concomitant]
     Active Substance: POTASSIUM CHLORIDE
  6. LENVATINIB [Suspect]
     Active Substance: LENVATINIB
     Route: 048
     Dates: start: 20130430, end: 20130506
  7. ENARENAL [Concomitant]
     Active Substance: ENALAPRIL
  8. HYDROCHLOROTHIAZIDUM [Concomitant]
  9. METOPROLOL TARTRATE. [Concomitant]
     Active Substance: METOPROLOL TARTRATE
  10. LENVATINIB [Suspect]
     Active Substance: LENVATINIB
     Route: 048
     Dates: start: 20130620, end: 20151214
  11. CALPEROS [Concomitant]
     Active Substance: CALCIUM CARBONATE
  12. BIORAZOL [Concomitant]

REACTIONS (2)
  - Wound infection [Not Recovered/Not Resolved]
  - Dyspnoea [Fatal]

NARRATIVE: CASE EVENT DATE: 20151220
